FAERS Safety Report 23952158 (Version 1)
Quarter: 2024Q2

REPORT INFORMATION
  Report Type: Spontaneous
  Country: FR (occurrence: None)
  Receive Date: 20240607
  Receipt Date: 20240607
  Transmission Date: 20240716
  Serious: Yes (Death, Other)
  Sender: FDA-Public Use
  Company Number: 2024A133272

PATIENT
  Age: 51 Year
  Sex: Female

DRUGS (9)
  1. GEFITINIB [Suspect]
     Active Substance: GEFITINIB
     Indication: Lung adenocarcinoma
     Dosage: FIRST-LINE TREATMENT
     Route: 048
  2. OSIMERTINIB [Suspect]
     Active Substance: OSIMERTINIB
     Indication: Lung adenocarcinoma
     Route: 048
  3. DABRAFENIB [Concomitant]
     Active Substance: DABRAFENIB
  4. TRAMETINIB [Concomitant]
     Active Substance: TRAMETINIB
  5. PACLITAXEL [Concomitant]
     Active Substance: PACLITAXEL
  6. BEVACIZUMAB [Concomitant]
     Active Substance: BEVACIZUMAB
  7. ALECTINIB [Concomitant]
     Active Substance: ALECTINIB
  8. CARBOPLATIN [Concomitant]
     Active Substance: CARBOPLATIN
  9. PEMETREXED [Concomitant]
     Active Substance: PEMETREXED

REACTIONS (4)
  - General physical health deterioration [Fatal]
  - Malignant neoplasm progression [Unknown]
  - Toxicity to various agents [Unknown]
  - Off label use [Unknown]
